FAERS Safety Report 20256028 (Version 1)
Quarter: 2021Q4

REPORT INFORMATION
  Report Type: Spontaneous
  Country: US (occurrence: None)
  Receive Date: 20211229
  Receipt Date: 20211229
  Transmission Date: 20220303
  Serious: Yes (Hospitalization)
  Sender: FDA-Public Use
  Company Number: None

PATIENT
  Sex: Male
  Weight: 10.4 kg

DRUGS (5)
  1. FLUOROURACIL [Suspect]
     Active Substance: FLUOROURACIL
     Dates: end: 20211122
  2. CISPLATIN [Suspect]
     Active Substance: CISPLATIN
     Dates: end: 20211122
  3. ZINECARD [Suspect]
     Active Substance: DEXRAZOXANE HYDROCHLORIDE
     Dates: end: 20211123
  4. DOXORUBICIN HYDROCHLORIDE [Suspect]
     Active Substance: DOXORUBICIN HYDROCHLORIDE
     Dates: end: 20211123
  5. VINCRISTINE SULFATE [Suspect]
     Active Substance: VINCRISTINE SULFATE
     Dates: end: 20211130

REACTIONS (6)
  - Intentional self-injury [None]
  - Peripheral swelling [None]
  - Staphylococcus test positive [None]
  - Blood blister [None]
  - Enterococcus test positive [None]
  - Cellulitis [None]

NARRATIVE: CASE EVENT DATE: 20211203
